FAERS Safety Report 8903151 (Version 1)
Quarter: 2012Q4

REPORT INFORMATION
  Report Type: 
  Country: GB (occurrence: GB)
  Receive Date: 20121112
  Receipt Date: 20121112
  Transmission Date: 20130627
  Serious: Yes (Other)
  Sender: FDA-Public Use
  Company Number: GB-AMGEN-GBRSP2012060812

PATIENT
  Age: 58 Year
  Sex: Female
  Weight: 63.64 kg

DRUGS (8)
  1. ENBREL [Suspect]
     Indication: PRODUCT USED FOR UNKNOWN INDICATION
     Dosage: 50 mg, weekly
     Route: 058
     Dates: start: 201209
  2. CODEINE [Concomitant]
     Dosage: 30 mg, 4x/day
     Route: 048
  3. FLUOXETINE [Concomitant]
     Dosage: 20 mg, 1x/day
     Route: 048
  4. MELOXICAM [Concomitant]
     Dosage: 7.5 mg, 1-2 tablets once a day
     Route: 048
  5. PARACETAMOL [Concomitant]
     Dosage: 1000 mg, 4x/day
     Route: 048
  6. LANSOPRAZOLE [Concomitant]
     Dosage: 20 mg, 1x/day
     Route: 048
  7. TRAMADOL [Concomitant]
     Dosage: 2 DF, 4x/day as needed
     Route: 048
  8. MOVELAT                            /00479601/ [Concomitant]
     Dosage: UNK

REACTIONS (1)
  - Palpitations [Unknown]
